FAERS Safety Report 19879775 (Version 1)
Quarter: 2021Q3

REPORT INFORMATION
  Report Type: Spontaneous
  Country: US (occurrence: US)
  Receive Date: 20210924
  Receipt Date: 20210924
  Transmission Date: 20211014
  Serious: Yes (Other)
  Sender: FDA-Public Use
  Company Number: US-PFIZER INC-202101011671

PATIENT

DRUGS (4)
  1. FLUDARABINE PHOSPHATE. [Suspect]
     Active Substance: FLUDARABINE PHOSPHATE
     Indication: PLASMA CELL MYELOMA
     Dosage: 30 MG/M2 PER DAY ON DAYS ?5, ?4, AND ?3
  2. CYCLOPHOSPHAMIDE. [Suspect]
     Active Substance: CYCLOPHOSPHAMIDE
     Indication: PLASMA CELL MYELOMA
     Dosage: 300 MG/M2 PER DAY ON DAYS ?5, ?4, AND ?3
  3. IDECABTAGENE VICLEUCEL. [Suspect]
     Active Substance: IDECABTAGENE VICLEUCEL
     Dosage: 450 X10E6 CAR+ T CELLS
  4. IDECABTAGENE VICLEUCEL. [Suspect]
     Active Substance: IDECABTAGENE VICLEUCEL
     Indication: PLASMA CELL MYELOMA
     Dosage: 150 X10E6 CAR+ T CELLS

REACTIONS (1)
  - Cytokine release syndrome [Unknown]
